FAERS Safety Report 11077503 (Version 2)
Quarter: 2015Q2

REPORT INFORMATION
  Report Type: Spontaneous
  Country: US (occurrence: US)
  Receive Date: 20150430
  Receipt Date: 20150526
  Transmission Date: 20150821
  Serious: No
  Sender: FDA-Public Use
  Company Number: US-JNJFOC-20140610463

PATIENT
  Sex: Female
  Weight: 47.63 kg

DRUGS (6)
  1. TYLENOL WITH CODEINE [Suspect]
     Active Substance: ACETAMINOPHEN\CODEINE PHOSPHATE
     Indication: PAIN
     Route: 048
     Dates: end: 201201
  2. TRAMADOL [Concomitant]
     Active Substance: TRAMADOL
     Indication: PAIN
     Route: 048
     Dates: start: 20131211
  3. CYMBALTA [Concomitant]
     Active Substance: DULOXETINE HYDROCHLORIDE
     Indication: PRODUCT USED FOR UNKNOWN INDICATION
     Dosage: ONE TABLET EVERY 4-6 HOURS
     Route: 048
     Dates: start: 201111
  4. TRAMADOL [Concomitant]
     Active Substance: TRAMADOL
     Indication: PAIN
     Dosage: ONE TABLET EVERY 4-6 HOURS
     Route: 048
     Dates: start: 201311, end: 201312
  5. IRON [Concomitant]
     Active Substance: IRON
     Indication: MINERAL SUPPLEMENTATION
     Dosage: ONE TABLET EVERY 4-6 HOURS
     Route: 048
     Dates: start: 201111
  6. LOVASTATIN. [Concomitant]
     Active Substance: LOVASTATIN
     Indication: HYPERLIPIDAEMIA
     Dosage: ONE TABLET EVERY 4-6 HOURS
     Route: 048
     Dates: start: 201111

REACTIONS (1)
  - Back pain [Unknown]
